FAERS Safety Report 14093131 (Version 1)
Quarter: 2017Q4

REPORT INFORMATION
  Report Type: Spontaneous
  Country: RO (occurrence: RO)
  Receive Date: 20171016
  Receipt Date: 20171016
  Transmission Date: 20180321
  Serious: Yes (Hospitalization, Other)
  Sender: FDA-Public Use
  Company Number: RO-MYLANLABS-2017M1064452

PATIENT
  Age: 27 Year
  Sex: Female

DRUGS (2)
  1. LEVETIRACETAM MYLAN [Suspect]
     Active Substance: LEVETIRACETAM
     Indication: PARTIAL SEIZURES
     Dosage: 1000 MG, QD
  2. PHENYTOIN. [Suspect]
     Active Substance: PHENYTOIN
     Indication: PARTIAL SEIZURES
     Dosage: 300 MG, QD

REACTIONS (2)
  - Hepatitis acute [Recovering/Resolving]
  - Drug hypersensitivity [Recovering/Resolving]
